FAERS Safety Report 23264324 (Version 2)
Quarter: 2024Q1

REPORT INFORMATION
  Report Type: Spontaneous
  Country: US (occurrence: US)
  Receive Date: 20231205
  Receipt Date: 20240111
  Transmission Date: 20240410
  Serious: Yes (Other)
  Sender: FDA-Public Use
  Company Number: US-FreseniusKabi-FK202319418

PATIENT
  Age: 49 Year
  Sex: Female
  Weight: 69.13 kg

DRUGS (1)
  1. XYLOCAINE WITH EPINEPHRINE [Suspect]
     Active Substance: EPINEPHRINE BITARTRATE\LIDOCAINE HYDROCHLORIDE
     Indication: Product used for unknown indication
     Dosage: USED 10 CC DILUTED 1:1 WITH SALINE WITH SALINE TO INFULTRATE FOR SCAR REVISION
     Dates: start: 20231101

REACTIONS (4)
  - Haemorrhage [Unknown]
  - Wound haemorrhage [Unknown]
  - Dehiscence [Unknown]
  - Therapeutic product effect decreased [Unknown]

NARRATIVE: CASE EVENT DATE: 20231121
